FAERS Safety Report 4524034-1 (Version None)
Quarter: 2004Q4

REPORT INFORMATION
  Report Type: 
  Country: None (occurrence: None)
  Receive Date: 20041209
  Receipt Date: 20041201
  Transmission Date: 20050328
  Serious: Yes (Death, Hospitalization, Other)
  Sender: FDA-Public Use
  Company Number: 2004-12-0037

PATIENT
  Sex: Female
  Weight: 68 kg

DRUGS (7)
  1. VIRAFERONPEG [Suspect]
     Indication: HEPATITIS C
     Dosage: 120 MCG SUBCUTANEOUS
     Route: 058
     Dates: start: 20040402, end: 20040702
  2. REBETOL [Suspect]
     Indication: HEPATITIS C
     Dosage: 1000 MG ORAL
     Route: 048
     Dates: start: 20040402, end: 20040630
  3. HYDROCORTISONE [Concomitant]
  4. ESTRADERM [Concomitant]
  5. LEVOTHYROXINE SODIUM [Concomitant]
  6. URSODEOXYCHOLIC ACID [Concomitant]
  7. NYSTATIN [Concomitant]

REACTIONS (18)
  - ABDOMINAL PAIN [None]
  - CEREBRAL HAEMORRHAGE [None]
  - CEREBRAL INFARCTION [None]
  - DIARRHOEA [None]
  - ENDOCARDITIS [None]
  - GENERAL PHYSICAL HEALTH DETERIORATION [None]
  - HYPOXIA [None]
  - LUNG INFILTRATION [None]
  - MALAISE [None]
  - MITRAL VALVE DISEASE [None]
  - NECROSIS [None]
  - NERVOUS SYSTEM DISORDER [None]
  - RENAL HAEMORRHAGE [None]
  - RENAL IMPAIRMENT [None]
  - RENAL NECROSIS [None]
  - RESPIRATORY DISORDER [None]
  - SEPTIC EMBOLUS [None]
  - URINARY TRACT INFECTION [None]
